FAERS Safety Report 6546768-X (Version None)
Quarter: 2010Q1

REPORT INFORMATION
  Report Type: 
  Country: None (occurrence: None)
  Receive Date: 20100119
  Receipt Date: 20100104
  Transmission Date: 20100710
  Serious: Yes (Hospitalization)
  Sender: FDA-Public Use
  Company Number: 2009AC000460

PATIENT
  Age: 67 Year
  Sex: Female

DRUGS (1)
  1. DIGOXIN [Suspect]
     Dosage: PO
     Route: 048
     Dates: start: 20040101

REACTIONS (9)
  - ANGINA PECTORIS [None]
  - CHEST PAIN [None]
  - DIARRHOEA [None]
  - DYSPNOEA [None]
  - DYSPNOEA EXERTIONAL [None]
  - ECONOMIC PROBLEM [None]
  - HEART RATE IRREGULAR [None]
  - INJURY [None]
  - NAUSEA [None]
